FAERS Safety Report 21395977 (Version 1)
Quarter: 2022Q3

REPORT INFORMATION
  Report Type: Report from Study
  Country: ES (occurrence: ES)
  Receive Date: 20220930
  Receipt Date: 20220930
  Transmission Date: 20221027
  Serious: Yes (Hospitalization, Other)
  Sender: FDA-Public Use
  Company Number: ES-ABBVIE-20K-144-3672931-00

PATIENT
  Age: 16 Year
  Sex: Male

DRUGS (4)
  1. HUMIRA [Suspect]
     Active Substance: ADALIMUMAB
     Indication: Crohn^s disease
     Route: 058
     Dates: start: 20171107, end: 20190507
  2. AZATHIOPRINE [Suspect]
     Active Substance: AZATHIOPRINE
     Indication: Crohn^s disease
     Route: 048
     Dates: start: 20130916, end: 20180305
  3. MASTICAL D [Concomitant]
     Indication: Supplementation therapy
     Dosage: DOSE:500 MG CALCIO/ 400 UI VITAMINA D
     Route: 048
     Dates: start: 20190521, end: 20200313
  4. MASTICAL D [Concomitant]
     Indication: Supplementation therapy
     Dosage: DOSE:500 MG/1000 UI
     Route: 048
     Dates: start: 20200314

REACTIONS (1)
  - Crohn^s disease [Recovered/Resolved]

NARRATIVE: CASE EVENT DATE: 20201127
